FAERS Safety Report 20934820 (Version 1)
Quarter: 2022Q2

REPORT INFORMATION
  Report Type: Spontaneous
  Country: US (occurrence: US)
  Receive Date: 20220608
  Receipt Date: 20220608
  Transmission Date: 20220721
  Serious: Yes (Other)
  Sender: FDA-Public Use
  Company Number: US-SA-SAC20220607000149

PATIENT
  Age: 58 Year
  Sex: Male

DRUGS (3)
  1. ZANTAC [Suspect]
     Active Substance: RANITIDINE HYDROCHLORIDE
     Indication: Dyspepsia
     Dosage: 150 MG, FREQUENCY : OTHER
     Route: 065
     Dates: start: 200601, end: 201910
  2. ZANTAC [Suspect]
     Active Substance: RANITIDINE HYDROCHLORIDE
     Indication: Hyperchlorhydria
  3. ZANTAC [Suspect]
     Active Substance: RANITIDINE HYDROCHLORIDE
     Indication: Abdominal discomfort

REACTIONS (6)
  - Renal cancer stage IV [Recovering/Resolving]
  - Arterial injury [Unknown]
  - Amnesia [Unknown]
  - Procedural complication [Unknown]
  - Haemorrhage [Unknown]
  - Brain hypoxia [Unknown]

NARRATIVE: CASE EVENT DATE: 20090101
